FAERS Safety Report 21551644 (Version 2)
Quarter: 2023Q1

REPORT INFORMATION
  Report Type: Report from Study
  Country: US (occurrence: US)
  Receive Date: 20221103
  Receipt Date: 20230331
  Transmission Date: 20230418
  Serious: Yes (Hospitalization)
  Sender: FDA-Public Use
  Company Number: US-ACADIA PHARMACEUTICALS INC.-ACA-2022-PIM-003501

PATIENT
  Age: 68 Year
  Sex: Female

DRUGS (15)
  1. NUPLAZID [Suspect]
     Active Substance: PIMAVANSERIN TARTRATE
     Indication: Parkinson^s disease psychosis
     Dosage: 34 MILLIGRAM, QD
     Route: 048
     Dates: start: 20220928
  2. ALPRAZOLAM [Concomitant]
     Active Substance: ALPRAZOLAM
  3. METOPROLOL [Concomitant]
     Active Substance: METOPROLOL
  4. PRAMIPEXOLE [Concomitant]
     Active Substance: PRAMIPEXOLE
  5. LEVOTHYROXINE [Concomitant]
     Active Substance: LEVOTHYROXINE
  6. VITAMIN D3 [Concomitant]
     Active Substance: CHOLECALCIFEROL
  7. FOLIC ACID [Concomitant]
     Active Substance: FOLIC ACID
  8. EZFE [Concomitant]
  9. DONEPEZIL [Concomitant]
     Active Substance: DONEPEZIL
  10. VITAMIN B12 [Concomitant]
     Active Substance: CYANOCOBALAMIN
  11. METAMUCIL [Concomitant]
     Active Substance: PLANTAGO SEED
  12. ONDANSETRON [Concomitant]
     Active Substance: ONDANSETRON
  13. FENOFIBRATE [Concomitant]
     Active Substance: FENOFIBRATE
  14. SERTRALINE [Concomitant]
     Active Substance: SERTRALINE HYDROCHLORIDE
  15. RASAGILINE [Concomitant]
     Active Substance: RASAGILINE

REACTIONS (2)
  - Malaise [Not Recovered/Not Resolved]
  - Hip surgery [Unknown]

NARRATIVE: CASE EVENT DATE: 20230319
